FAERS Safety Report 5531294-7 (Version None)
Quarter: 2007Q4

REPORT INFORMATION
  Report Type: 
  Country: None (occurrence: None)
  Receive Date: 20071128
  Receipt Date: 20071114
  Transmission Date: 20080405
  Serious: Yes (Death)
  Sender: FDA-Public Use
  Company Number: 100#08#2007-04740

PATIENT
  Age: 15 Year
  Sex: Male

DRUGS (10)
  1. METHOTREXATE [Suspect]
     Indication: ACUTE LYMPHOCYTIC LEUKAEMIA
     Dosage: INTRATHECAL, INTRAVENOUS (NOT OTHERWISE SPECIFIED)
  2. DOXORUBICIN HCL [Suspect]
     Indication: ACUTE LYMPHOCYTIC LEUKAEMIA
  3. CORTISONE ACETATE [Suspect]
     Indication: ACUTE LYMPHOCYTIC LEUKAEMIA
  4. VINCRISTINE [Suspect]
     Indication: ACUTE LYMPHOCYTIC LEUKAEMIA
  5. DAUNORUBICIN HCL [Suspect]
     Indication: ACUTE LYMPHOCYTIC LEUKAEMIA
  6. ASPARAGINASE                                                         ( [Suspect]
     Indication: ACUTE LYMPHOCYTIC LEUKAEMIA
  7. CYCLOPHOSPHAMIDE                                           (CYCLOPHOSP [Suspect]
     Indication: ACUTE LYMPHOCYTIC LEUKAEMIA
  8. 6-MERCAPTOPURINE [Suspect]
     Indication: ACUTE LYMPHOCYTIC LEUKAEMIA
  9. CYTARABINE [Suspect]
     Indication: ACUTE LYMPHOCYTIC LEUKAEMIA
  10. THIOGUANINE [Suspect]
     Indication: ACUTE LYMPHOCYTIC LEUKAEMIA

REACTIONS (1)
  - GLIOMA [None]
